FAERS Safety Report 7312580-7 (Version None)
Quarter: 2011Q1

REPORT INFORMATION
  Report Type: 
  Country: None (occurrence: None)
  Receive Date: 20110224
  Receipt Date: 20110222
  Transmission Date: 20110831
  Serious: Yes (Other)
  Sender: FDA-Public Use
  Company Number: US-AMGEN-USASP2011006262

PATIENT
  Age: 37 Year
  Sex: Female

DRUGS (2)
  1. CORTICOSTEROIDS [Concomitant]
  2. NPLATE [Suspect]
     Indication: IDIOPATHIC THROMBOCYTOPENIC PURPURA
     Dosage: 0.64 A?G/KG, QWK
     Route: 058
     Dates: start: 20100813, end: 20100907

REACTIONS (5)
  - THROMBOCYTOPENIA [None]
  - DRUG INTOLERANCE [None]
  - MYALGIA [None]
  - ADVERSE DRUG REACTION [None]
  - DRUG INEFFECTIVE [None]
